FAERS Safety Report 9145651 (Version 1)
Quarter: 2013Q1

REPORT INFORMATION
  Report Type: Spontaneous
  Country: US (occurrence: US)
  Receive Date: 20130307
  Receipt Date: 20130307
  Transmission Date: 20140127
  Serious: No
  Sender: FDA-Public Use
  Company Number: US-PFIZER INC-2013077818

PATIENT
  Age: 48 Year
  Sex: Female
  Weight: 87.98 kg

DRUGS (8)
  1. ERYTHROMYCIN [Suspect]
  2. XANAX [Suspect]
  3. ENBREL [Suspect]
  4. ORENCIA [Suspect]
  5. HALDOL [Suspect]
  6. REMERON [Suspect]
  7. LUNESTA [Suspect]
  8. RITALIN [Suspect]

REACTIONS (1)
  - Drug hypersensitivity [Unknown]
